FAERS Safety Report 4350408-8 (Version None)
Quarter: 2004Q2

REPORT INFORMATION
  Report Type: 
  Country: None (occurrence: None)
  Receive Date: 20040430
  Receipt Date: 20040409
  Transmission Date: 20050107
  Serious: Yes (Death, Hospitalization)
  Sender: FDA-Public Use
  Company Number: 200414001GDDC

PATIENT
  Age: 72 Year
  Sex: Male

DRUGS (2)
  1. LASIX [Suspect]
     Indication: OEDEMA
     Route: 048
     Dates: start: 20020201, end: 20030603
  2. INVESTIGATIONAL DRUG NOS [Suspect]
     Dosage: DOSE: UNK

REACTIONS (6)
  - HEART RATE INCREASED [None]
  - HYPOTENSION [None]
  - INTERNATIONAL NORMALISED RATIO INCREASED [None]
  - ISCHAEMIC CARDIOMYOPATHY [None]
  - OEDEMA [None]
  - WHITE BLOOD CELL COUNT DECREASED [None]
